FAERS Safety Report 12446331 (Version 1)
Quarter: 2016Q2

REPORT INFORMATION
  Report Type: Spontaneous
  Country: SE (occurrence: None)
  Receive Date: 20160607
  Receipt Date: 20160607
  Transmission Date: 20160815
  Serious: Yes (Disabling)
  Sender: FDA-Public Use
  Company Number: None

PATIENT
  Age: 36 Year
  Sex: Female
  Weight: 55 kg

DRUGS (1)
  1. AZZALURE [Suspect]
     Active Substance: BOTULINUM TOXIN TYPE A

REACTIONS (11)
  - Back pain [None]
  - Fatigue [None]
  - Visual impairment [None]
  - Hypoaesthesia [None]
  - Dry eye [None]
  - Decreased appetite [None]
  - Headache [None]
  - Neck pain [None]
  - Thirst [None]
  - Influenza like illness [None]
  - Dry mouth [None]

NARRATIVE: CASE EVENT DATE: 20160520
